FAERS Safety Report 7328913-1 (Version None)
Quarter: 2011Q1

REPORT INFORMATION
  Report Type: 
  Country: None (occurrence: None)
  Receive Date: 20110303
  Receipt Date: 20110223
  Transmission Date: 20110831
  Serious: Yes (Other)
  Sender: FDA-Public Use
  Company Number: GB-JNJFOC-2010016516

PATIENT
  Sex: Female

DRUGS (1)
  1. NICORETTE NASAL SPRAY [Suspect]
     Indication: PRODUCT USED FOR UNKNOWN INDICATION
     Dosage: DAILY DOSE TEXT: UNKNOWN
     Route: 045

REACTIONS (3)
  - INTENTIONAL DRUG MISUSE [None]
  - DEPENDENCE [None]
  - EPISTAXIS [None]
